FAERS Safety Report 4570341-6 (Version None)
Quarter: 2005Q1

REPORT INFORMATION
  Report Type: 
  Country: None (occurrence: None)
  Receive Date: 20050204
  Receipt Date: 20050104
  Transmission Date: 20050727
  Serious: Yes (Hospitalization)
  Sender: FDA-Public Use
  Company Number: FR-ROCHE-391304

PATIENT
  Age: 55 Year
  Sex: Male
  Weight: 82 kg

DRUGS (18)
  1. DACLIZUMAB [Suspect]
     Indication: RENAL TRANSPLANT
     Route: 065
     Dates: start: 20041127, end: 20041211
  2. MYCOPHENOLATE MOFETIL [Suspect]
     Indication: RENAL TRANSPLANT
     Route: 048
     Dates: start: 20041127
  3. CYCLOSPORINE [Suspect]
     Indication: RENAL TRANSPLANT
     Route: 065
     Dates: start: 20041130
  4. STEROIDS NOS [Suspect]
     Indication: RENAL TRANSPLANT
     Route: 065
     Dates: start: 20041127
  5. AZANTAC [Concomitant]
     Route: 048
     Dates: start: 20041127
  6. BACTRIM [Concomitant]
     Route: 048
     Dates: start: 20041128
  7. BISOPROLOL FUMARATE [Concomitant]
     Route: 048
     Dates: start: 20041202
  8. FLUDEX [Concomitant]
     Route: 048
     Dates: start: 20041220
  9. GAVISCON [Concomitant]
     Route: 048
     Dates: start: 20041213
  10. IDEOS [Concomitant]
     Route: 048
     Dates: start: 20041220
  11. ACETAMINOPHEN [Concomitant]
     Route: 048
     Dates: start: 20041215
  12. LEXOMIL [Concomitant]
     Route: 048
     Dates: start: 20041201
  13. PHOSPHONEUROS [Concomitant]
     Route: 048
     Dates: start: 20041213
  14. ATORVASTATIN CALCIUM [Concomitant]
     Route: 048
     Dates: start: 20041223
  15. RAMIPRIL [Concomitant]
     Route: 048
     Dates: start: 20041223
  16. XATRAL [Concomitant]
     Dosage: REPORTED AS XATRAL LP.
     Route: 048
     Dates: start: 20041207
  17. FURADANTIN [Concomitant]
     Route: 048
     Dates: start: 20041217
  18. ARANESP [Concomitant]
     Route: 058
     Dates: start: 20041216

REACTIONS (1)
  - HERPES ZOSTER [None]
